FAERS Safety Report 19026500 (Version 1)
Quarter: 2021Q1

REPORT INFORMATION
  Report Type: Report from Study
  Country: US (occurrence: US)
  Receive Date: 20210318
  Receipt Date: 20210318
  Transmission Date: 20210420
  Serious: Yes (Hospitalization)
  Sender: FDA-Public Use
  Company Number: US-PACIRA-2021000200

PATIENT
  Age: 67 Year
  Sex: Female
  Weight: 75 kg

DRUGS (17)
  1. SALINE [Concomitant]
     Active Substance: SODIUM CHLORIDE
     Indication: POSTOPERATIVE ANALGESIA
     Dosage: 2018; 40ML WITH 20ML EXPAREL. TOTAL VOLUME 60ML
     Route: 065
  2. ONDANSETRON [Concomitant]
     Active Substance: ONDANSETRON
     Indication: INTRAOPERATIVE CARE
     Dosage: NOT REPORTED
     Route: 065
  3. OXYGEN. [Concomitant]
     Active Substance: OXYGEN
     Indication: INTRAOPERATIVE CARE
     Dosage: NOT REPORTED
     Route: 065
  4. NORCO 5 [Concomitant]
     Indication: POSTOPERATIVE ANALGESIA
     Dosage: 1?2 TABLETS BY MOUTH EVERY 4 (FOUR) HOURS AS NEEDED (Q4H PRN)
     Route: 048
  5. CELEBREX [Concomitant]
     Active Substance: CELECOXIB
     Indication: PREOPERATIVE CARE
     Dosage: NOT PROVIDED
     Route: 065
  6. FENTANYL. [Concomitant]
     Active Substance: FENTANYL
     Indication: INTRAOPERATIVE CARE
     Dosage: NOT REPORTED
     Route: 065
  7. NORCO 5 [Concomitant]
     Indication: POSTOPERATIVE ANALGESIA
     Dosage: 11:06AM??1 TABLET 1
     Route: 065
     Dates: start: 20180511
  8. NORCO 5 [Concomitant]
     Indication: POSTOPERATIVE ANALGESIA
     Dosage: 8:01AM??1 TABLET 1
     Route: 065
     Dates: start: 20180511
  9. EXPAREL [Suspect]
     Active Substance: BUPIVACAINE
     Indication: POSTOPERATIVE ANALGESIA
     Dosage: 2018 20ML EXPAREL AND 40ML SALINE TOTAL VOLUME 60ML
     Route: 065
  10. BUPIVACAINE. [Suspect]
     Active Substance: BUPIVACAINE
     Indication: POSTOPERATIVE ANALGESIA
     Dosage: 2018; 30ML
     Route: 065
  11. DEXAMETHASONE. [Concomitant]
     Active Substance: DEXAMETHASONE
     Indication: INTRAOPERATIVE CARE
     Dosage: NOT REPORTED
     Route: 065
  12. TYLENOL [Concomitant]
     Active Substance: ACETAMINOPHEN
     Indication: INTRAOPERATIVE CARE
     Dosage: NOT REPORTED
     Route: 042
  13. MIDAZOLAM. [Concomitant]
     Active Substance: MIDAZOLAM
     Indication: INTRAOPERATIVE CARE
     Dosage: NOT REPORTED
     Route: 065
  14. NORCO 5 [Concomitant]
     Indication: POSTOPERATIVE ANALGESIA
     Dosage: 2:05PM??1 TABLET 1
     Route: 065
     Dates: start: 20180510
  15. NORCO 5 [Concomitant]
     Indication: POSTOPERATIVE ANALGESIA
     Dosage: 10:46AM??1 TABLET 1
     Route: 065
     Dates: start: 20180511
  16. METOCLOPRAMI [Concomitant]
     Indication: INTRAOPERATIVE CARE
     Dosage: NOT REPORTED
     Route: 065
  17. PROPOFOL. [Concomitant]
     Active Substance: PROPOFOL
     Indication: INTRAOPERATIVE CARE
     Dosage: NOT REPORTED
     Route: 065

REACTIONS (1)
  - Osteoarthritis [Unknown]
